FAERS Safety Report 9818764 (Version 1)
Quarter: 2014Q1

REPORT INFORMATION
  Report Type: Spontaneous
  Country: US (occurrence: None)
  Receive Date: 20140114
  Receipt Date: 20140114
  Transmission Date: 20141002
  Serious: Yes (Life-Threatening)
  Sender: FDA-Public Use
  Company Number: None

PATIENT
  Sex: Female
  Weight: 109.32 kg

DRUGS (1)
  1. FLONASE [Suspect]
     Indication: SINUSITIS
     Route: 045
     Dates: start: 2012

REACTIONS (1)
  - Anaphylactic reaction [None]
